FAERS Safety Report 8074454-6 (Version None)
Quarter: 2012Q1

REPORT INFORMATION
  Report Type: 
  Country: None (occurrence: None)
  Receive Date: 20120126
  Receipt Date: 20120119
  Transmission Date: 20120608
  Serious: Yes (Other)
  Sender: FDA-Public Use
  Company Number: ZA-ROXANE LABORATORIES, INC.-2012-RO-00501RO

PATIENT
  Age: 10 Year
  Sex: Female

DRUGS (2)
  1. METHYLPHENIDATE [Suspect]
     Indication: ATTENTION DEFICIT/HYPERACTIVITY DISORDER
  2. CITALOPRAM HYDROBROMIDE [Suspect]
     Indication: MAJOR DEPRESSION
     Dosage: 10 MG

REACTIONS (10)
  - PSYCHOMOTOR HYPERACTIVITY [None]
  - SCHIZOAFFECTIVE DISORDER BIPOLAR TYPE [None]
  - PSYCHOTIC DISORDER [None]
  - VICTIM OF SEXUAL ABUSE [None]
  - IMPAIRED SELF-CARE [None]
  - BORDERLINE PERSONALITY DISORDER [None]
  - PERSECUTORY DELUSION [None]
  - HALLUCINATION, AUDITORY [None]
  - SUBSTANCE ABUSE [None]
  - BISEXUALITY [None]
